FAERS Safety Report 12211868 (Version 2)
Quarter: 2016Q2

REPORT INFORMATION
  Report Type: Spontaneous
  Country: US (occurrence: US)
  Receive Date: 20160325
  Receipt Date: 20160511
  Transmission Date: 20160815
  Serious: No
  Sender: FDA-Public Use
  Company Number: US-VERTEX PHARMACEUTICALS-2016-000649

PATIENT
  Age: 16 Year
  Sex: Male
  Weight: 60 kg

DRUGS (22)
  1. ORKAMBI [Suspect]
     Active Substance: IVACAFTOR\LUMACAFTOR
     Indication: CYSTIC FIBROSIS
     Dosage: 2 DF, BID
     Route: 048
     Dates: start: 201507
  2. CF MEDICATIONS [Concomitant]
     Indication: CYSTIC FIBROSIS
  3. ONDANSETRON [Concomitant]
     Active Substance: ONDANSETRON
     Indication: NAUSEA
     Dosage: 1 DFEVERY 8 HRS, PRN, DISSOLVE TABLET IN MOUTH WHEN TAKING
     Route: 048
     Dates: start: 20160425
  4. ZENPEP [Concomitant]
     Active Substance: PANCRELIPASE AMYLASE\PANCRELIPASE LIPASE\PANCRELIPASE PROTEASE
     Dosage: 1-2 CAPSULE WITH SNACKS
     Route: 048
     Dates: start: 20160422
  5. AZITHROMYCIN ANHYDROUS. [Concomitant]
     Active Substance: AZITHROMYCIN ANHYDROUS
     Dosage: 1 DF, M, W, F
     Dates: start: 20160502
  6. PULMOZYME [Concomitant]
     Active Substance: DORNASE ALFA
     Dosage: 2.5 MG, QD INTO LUNGS EVERY MORNING
     Route: 055
     Dates: start: 20151229
  7. ZENPEP [Concomitant]
     Active Substance: PANCRELIPASE AMYLASE\PANCRELIPASE LIPASE\PANCRELIPASE PROTEASE
     Dosage: 5 CAPSULES WITH BREAKFAST + BEDTIME, 7 AT LUNCH, 7 AT SUPPER, 4 WITH BEDTIME SNACK, 1-2 WITH SNACKS
     Dates: start: 20160219
  8. CLONIDINE. [Concomitant]
     Active Substance: CLONIDINE
     Dosage: 1 DF, BID
     Route: 048
     Dates: start: 20160426
  9. HUMALOG [Concomitant]
     Active Substance: INSULIN LISPRO
     Dosage: USE IN PUMPS, UPTO 20 UNITS, QD
     Dates: start: 20160104
  10. VITAMINS [Concomitant]
     Active Substance: VITAMINS
  11. CYPROHEPTADINE. [Concomitant]
     Active Substance: CYPROHEPTADINE
     Dosage: 1 DF, TID, 15 MIN PRIOR TO MEAL
     Route: 048
     Dates: start: 20160317
  12. FLUCONAZOLE. [Concomitant]
     Active Substance: FLUCONAZOLE
     Dosage: 1 DF, QD
     Route: 048
     Dates: start: 20160426, end: 20160503
  13. ZENPEP [Concomitant]
     Active Substance: PANCRELIPASE AMYLASE\PANCRELIPASE LIPASE\PANCRELIPASE PROTEASE
     Dosage: 7 CAPSULES WITH MEALS, TID
     Route: 048
     Dates: start: 20160422
  14. INSULIN [Concomitant]
     Active Substance: INSULIN NOS
  15. ESOMEPRAZOLE [Concomitant]
     Active Substance: ESOMEPRAZOLE
     Dosage: 1 DF, QD
     Route: 048
     Dates: start: 20160205, end: 20160505
  16. SODIUM CHLORIDE. [Concomitant]
     Active Substance: SODIUM CHLORIDE
     Dosage: 1 VIAL , BID
     Route: 055
  17. GI MEDICATIONS [Concomitant]
     Indication: GASTROINTESTINAL DISORDER
  18. VENTOLIN HFA [Concomitant]
     Active Substance: ALBUTEROL SULFATE
     Indication: WHEEZING
     Dosage: INHALE 4 PUFFS INTO LUNGS EVERY 4 HRS, PRN
     Route: 055
     Dates: start: 20151229
  19. ESCITALOPRAM [Concomitant]
     Active Substance: ESCITALOPRAM OXALATE
     Dosage: 1 DF, QD
     Route: 048
     Dates: start: 20151231
  20. PROVENTIL [Concomitant]
     Active Substance: ALBUTEROL
     Dosage: 3 ML, BID
     Route: 055
     Dates: start: 20151229
  21. MONTELUKAST [Concomitant]
     Active Substance: MONTELUKAST SODIUM
     Dosage: 1 DF, QD
     Route: 048
     Dates: start: 20150112
  22. SULFAMETHOXAZOLE-TRIMETHOPRIM [Concomitant]
     Active Substance: SULFAMETHOXAZOLE\TRIMETHOPRIM
     Dosage: 2 DF, TID
     Route: 048
     Dates: start: 20160422, end: 20160504

REACTIONS (1)
  - Urine cannabinoids increased [Unknown]

NARRATIVE: CASE EVENT DATE: 20160202
